FAERS Safety Report 22094035 (Version 1)
Quarter: 2023Q1

REPORT INFORMATION
  Report Type: Spontaneous
  Country: US (occurrence: None)
  Receive Date: 20230314
  Receipt Date: 20230314
  Transmission Date: 20230418
  Serious: No
  Sender: FDA-Public Use
  Company Number: None

PATIENT
  Age: 76 Year
  Sex: Female

DRUGS (1)
  1. AMBRISENTAN [Suspect]
     Active Substance: AMBRISENTAN
     Indication: Pulmonary hypertension
     Dosage: FREQUENCY : DAILY;?
     Route: 048
     Dates: start: 20141017

REACTIONS (8)
  - Nausea [None]
  - Vomiting [None]
  - Large intestine infection [None]
  - Inflammatory bowel disease [None]
  - Colitis ischaemic [None]
  - Pleuritic pain [None]
  - Left ventricular failure [None]
  - Pneumonia [None]

NARRATIVE: CASE EVENT DATE: 20230305
